FAERS Safety Report 8314665-5 (Version None)
Quarter: 2012Q2

REPORT INFORMATION
  Report Type: 
  Country: None (occurrence: None)
  Receive Date: 20120426
  Receipt Date: 20120413
  Transmission Date: 20120825
  Serious: Yes (Other)
  Sender: FDA-Public Use
  Company Number: US-ELI_LILLY_AND_COMPANY-US201204005173

PATIENT
  Age: 62 Year
  Sex: Male

DRUGS (5)
  1. CYMBALTA [Suspect]
     Indication: DEPRESSION
     Dosage: 120 MG, QD
  2. CLONIDINE [Concomitant]
  3. ADDERALL 5 [Concomitant]
  4. KLONOPIN [Concomitant]
  5. BUPRENORPHINE [Concomitant]

REACTIONS (6)
  - DERMATITIS BULLOUS [None]
  - SKIN HAEMORRHAGE [None]
  - VISUAL IMPAIRMENT [None]
  - SKIN EXFOLIATION [None]
  - PRURITUS [None]
  - URTICARIA [None]
